FAERS Safety Report 16887696 (Version 4)
Quarter: 2020Q1

REPORT INFORMATION
  Report Type: Spontaneous
  Country: FR (occurrence: FR)
  Receive Date: 20191005
  Receipt Date: 20200302
  Transmission Date: 20200409
  Serious: Yes (Death, Life-Threatening, Hospitalization, Other)
  Sender: FDA-Public Use
  Company Number: FR-AUROBINDO-AUR-APL-2019-063094

PATIENT
  Age: 61 Year
  Sex: Female

DRUGS (2)
  1. CARBOPLATIN. [Suspect]
     Active Substance: CARBOPLATIN
     Indication: SQUAMOUS CELL CARCINOMA
     Dosage: CYCLICAL AUC 2
     Route: 065
     Dates: end: 201411
  2. PACLITAXEL. [Suspect]
     Active Substance: PACLITAXEL
     Indication: SQUAMOUS CELL CARCINOMA
     Dosage: 60 MILLIGRAM/SQ. METER, CYCLICAL  ON D1-D8-D15
     Route: 065
     Dates: start: 20141010, end: 201411

REACTIONS (8)
  - Posterior reversible encephalopathy syndrome [Recovering/Resolving]
  - Malignant neoplasm progression [Fatal]
  - Eye pain [Unknown]
  - General physical health deterioration [Unknown]
  - Candida sepsis [Recovering/Resolving]
  - Squamous cell carcinoma [Fatal]
  - Visual acuity reduced [Recovering/Resolving]
  - Headache [Unknown]

NARRATIVE: CASE EVENT DATE: 201410
